FAERS Safety Report 19170554 (Version 1)
Quarter: 2021Q2

REPORT INFORMATION
  Report Type: Spontaneous
  Country: EG (occurrence: EG)
  Receive Date: 20210423
  Receipt Date: 20210423
  Transmission Date: 20210717
  Serious: Yes (Death)
  Sender: FDA-Public Use
  Company Number: EG-SA-2021SA132216

PATIENT
  Age: 80 Year
  Sex: Female
  Weight: 115 kg

DRUGS (9)
  1. CLEXANE [Suspect]
     Active Substance: ENOXAPARIN SODIUM
     Indication: EMBOLISM VENOUS
     Dosage: 60 MG
     Route: 058
     Dates: start: 20210322, end: 20210327
  2. ROCEPHIN [Concomitant]
     Active Substance: CEFTRIAXONE SODIUM
     Dosage: 1 GM VIAL WITH A DOSE OF 2 GM /DAY
     Dates: start: 20210322, end: 20210331
  3. CLEXANE [Suspect]
     Active Substance: ENOXAPARIN SODIUM
     Dosage: 80 MG, Q12H
     Dates: start: 20210328, end: 20210330
  4. REMDESIVIR. [Concomitant]
     Active Substance: REMDESIVIR
     Dosage: 200 MG
     Dates: start: 20210326, end: 20210329
  5. ASPROTECT [Concomitant]
     Dosage: 1 DF, QD
     Dates: end: 20210331
  6. CLEXANE [Suspect]
     Active Substance: ENOXAPARIN SODIUM
     Dosage: 40 MG, Q12H
     Dates: start: 20210330, end: 20210331
  7. ACTEMRA [Concomitant]
     Active Substance: TOCILIZUMAB
     Dosage: 2 MG/ML, Q12H
     Route: 042
  8. DOXYCLIN [DOXYCYCLINE HYCLATE] [Concomitant]
     Dosage: 500 MG, Q12H
     Dates: start: 20210322, end: 20210331
  9. REMDESIVIR. [Concomitant]
     Active Substance: REMDESIVIR
     Dates: start: 20210325, end: 20210325

REACTIONS (5)
  - Oxygen saturation decreased [Fatal]
  - Red blood cell count decreased [Fatal]
  - Haemoglobin decreased [Fatal]
  - Ecchymosis [Fatal]
  - General physical health deterioration [Fatal]

NARRATIVE: CASE EVENT DATE: 20210330
